FAERS Safety Report 17229313 (Version 1)
Quarter: 2020Q1

REPORT INFORMATION
  Report Type: Report from Study
  Country: CA (occurrence: CA)
  Receive Date: 20200103
  Receipt Date: 20200103
  Transmission Date: 20200409
  Serious: Yes (Other)
  Sender: FDA-Public Use
  Company Number: CA-PFIZER INC-2019562554

PATIENT
  Age: 68 Year
  Sex: Female

DRUGS (9)
  1. SYNTHROID [Concomitant]
     Active Substance: LEVOTHYROXINE SODIUM
     Indication: HYPOTHYROIDISM
     Dosage: 1 DF, 1X/DAY
     Route: 048
  2. SANDOZ PRAMIPEXOLE [Suspect]
     Active Substance: PRAMIPEXOLE DIHYDROCHLORIDE
     Indication: PAIN IN EXTREMITY
     Dosage: 1 DF, 2X/DAY
     Route: 048
  3. ZENHALE [Concomitant]
     Active Substance: FORMOTEROL FUMARATE\MOMETASONE FUROATE
     Indication: ASTHMA
     Dosage: 1 DF, 2X/DAY
     Route: 055
  4. SANDOZ IRBESARTAN [Suspect]
     Active Substance: IRBESARTAN
     Indication: HYPERTENSION
     Dosage: 1 DF, 1X/DAY
     Route: 048
  5. VENTOLIN [Concomitant]
     Active Substance: ALBUTEROL SULFATE
     Indication: ASTHMA
     Dosage: 2 DF, UNK
     Route: 055
  6. CICLESONIDE [Concomitant]
     Active Substance: CICLESONIDE
     Indication: ASTHMA
     Dosage: 1 DF, 1X/DAY
     Route: 055
  7. METFORMIN HYDROCHLORIDE. [Concomitant]
     Active Substance: METFORMIN HYDROCHLORIDE
     Indication: TYPE 2 DIABETES MELLITUS
     Dosage: 1 DF, 2X/DAY
     Route: 048
  8. PANTOPRAZOLE SODIUM. [Concomitant]
     Active Substance: PANTOPRAZOLE SODIUM
     Indication: GASTROOESOPHAGEAL REFLUX DISEASE
     Dosage: 1 DF, 1X/DAY
     Route: 048
  9. PREGABALIN. [Suspect]
     Active Substance: PREGABALIN
     Indication: PAIN IN EXTREMITY
     Dosage: 1 DF, 2X/DAY
     Route: 048

REACTIONS (13)
  - Breath sounds abnormal [Unknown]
  - Cough [Unknown]
  - Sense of oppression [Unknown]
  - Middle insomnia [Unknown]
  - Productive cough [Unknown]
  - Dyspnoea exertional [Unknown]
  - Secretion discharge [Unknown]
  - Bronchitis [Unknown]
  - Bronchospasm [Unknown]
  - Dyspnoea [Unknown]
  - Asthma [Unknown]
  - Atrial fibrillation [Unknown]
  - Wheezing [Unknown]
